FAERS Safety Report 20566938 (Version 1)
Quarter: 2022Q1

REPORT INFORMATION
  Report Type: Spontaneous
  Country: JP (occurrence: JP)
  Receive Date: 20220308
  Receipt Date: 20220308
  Transmission Date: 20220423
  Serious: Yes (Other)
  Sender: FDA-Public Use
  Company Number: JP-ALLERGAN-2207581US

PATIENT
  Sex: Female

DRUGS (2)
  1. URSODIOL [Suspect]
     Active Substance: URSODIOL
     Indication: Product used for unknown indication
     Dosage: 100 MG, TID
     Route: 048
  2. URSODIOL [Suspect]
     Active Substance: URSODIOL
     Dosage: 50 MG, TID
     Route: 048

REACTIONS (9)
  - Cholecystectomy [Unknown]
  - Cholestasis [Unknown]
  - Sense of oppression [Unknown]
  - Flatulence [Unknown]
  - Intentional product misuse [Unknown]
  - Diarrhoea [Unknown]
  - Liver function test increased [Unknown]
  - Dyspepsia [Unknown]
  - Dyspepsia [Unknown]
